FAERS Safety Report 8816945 (Version 1)
Quarter: 2012Q4

REPORT INFORMATION
  Report Type: Spontaneous
  Country: US (occurrence: None)
  Receive Date: 20121002
  Receipt Date: 20121002
  Transmission Date: 20130627
  Serious: Yes (Other)
  Sender: FDA-Public Use
  Company Number: None

PATIENT
  Age: 45 Year
  Sex: Male
  Weight: 89.36 kg

DRUGS (1)
  1. ABILIFY [Suspect]
     Indication: PARANOID SCHIZOPHRENIA
     Dosage: 15mg Daily po
     Route: 048

REACTIONS (1)
  - Abnormal dreams [None]
